FAERS Safety Report 13735803 (Version 1)
Quarter: 2017Q3

REPORT INFORMATION
  Report Type: Spontaneous
  Country: FR (occurrence: FR)
  Receive Date: 20170710
  Receipt Date: 20170710
  Transmission Date: 20171127
  Serious: Yes (Hospitalization, Other)
  Sender: FDA-Public Use
  Company Number: PHHY2011FR50265

PATIENT
  Age: 48 Year
  Sex: Female

DRUGS (2)
  1. DESERNIL [Suspect]
     Active Substance: METHYSERGIDE MALEATE
     Indication: CLUSTER HEADACHE
     Dosage: 2 DF
     Route: 048
  2. IMOVANE [Concomitant]
     Active Substance: ZOPICLONE

REACTIONS (10)
  - Pulmonary arterial hypertension [Not Recovered/Not Resolved]
  - Pulmonary arterial pressure abnormal [Unknown]
  - Drug effect decreased [Unknown]
  - Tricuspid valve incompetence [Not Recovered/Not Resolved]
  - Dyspnoea exertional [Recovering/Resolving]
  - Brain natriuretic peptide increased [Unknown]
  - Dilatation atrial [Unknown]
  - Mitral valve stenosis [Unknown]
  - Palpitations [Unknown]
  - Mitral valve incompetence [Not Recovered/Not Resolved]

NARRATIVE: CASE EVENT DATE: 20110509
